FAERS Safety Report 16847089 (Version 2)
Quarter: 2019Q4

REPORT INFORMATION
  Report Type: Spontaneous
  Country: US (occurrence: US)
  Receive Date: 20190924
  Receipt Date: 20191030
  Transmission Date: 20200122
  Serious: Yes (Hospitalization)
  Sender: FDA-Public Use
  Company Number: US-TEVA-2019-US-1112322

PATIENT
  Age: 34 Year
  Sex: Male

DRUGS (1)
  1. LINEZOLID. [Suspect]
     Active Substance: LINEZOLID
     Indication: INFECTION
     Route: 065

REACTIONS (2)
  - Interstitial lung disease [Recovering/Resolving]
  - Lung disorder [Unknown]
